FAERS Safety Report 6594937-5 (Version None)
Quarter: 2010Q1

REPORT INFORMATION
  Report Type: 
  Country: None (occurrence: None)
  Receive Date: 20100222
  Receipt Date: 20100210
  Transmission Date: 20100710
  Serious: Yes (Hospitalization, Disabling, Other)
  Sender: FDA-Public Use
  Company Number: GB-PFIZER INC-2008055039

PATIENT
  Age: 51 Year
  Sex: Male

DRUGS (5)
  1. SILDENAFIL CITRATE [Interacting]
  2. ATENOLOL [Interacting]
     Indication: HYPERTENSION
  3. PROPRANOLOL HYDROCHLORIDE [Interacting]
     Indication: MIGRAINE
  4. DOTHIEPIN HYDROCHLORIDE [Suspect]
     Indication: DEPRESSION
  5. HYDROCORTISONE [Concomitant]

REACTIONS (10)
  - BLOOD CORTISOL DECREASED [None]
  - DIPLOPIA [None]
  - DRUG INTERACTION [None]
  - HEADACHE [None]
  - HORMONE LEVEL ABNORMAL [None]
  - HYPOPITUITARISM [None]
  - IIIRD NERVE PARALYSIS [None]
  - NAUSEA [None]
  - PITUITARY HAEMORRHAGE [None]
  - PITUITARY TUMOUR BENIGN [None]
